FAERS Safety Report 19975401 (Version 4)
Quarter: 2022Q1

REPORT INFORMATION
  Report Type: Report from Study
  Country: DE (occurrence: DE)
  Receive Date: 20211021
  Receipt Date: 20220107
  Transmission Date: 20220423
  Serious: Yes (Congenital Anomaly)
  Sender: FDA-Public Use
  Company Number: DE-ABBVIE-21K-062-4126379-00

PATIENT
  Sex: Female
  Weight: 3.4 kg

DRUGS (2)
  1. LOPINAVIR\RITONAVIR [Suspect]
     Active Substance: LOPINAVIR\RITONAVIR
     Indication: Maternal exposure timing unspecified
     Route: 064
  2. TRUVADA [Suspect]
     Active Substance: EMTRICITABINE\TENOFOVIR DISOPROXIL FUMARATE
     Indication: Product used for unknown indication
     Route: 064

REACTIONS (3)
  - Brachydactyly [Not Recovered/Not Resolved]
  - Foetal exposure during pregnancy [Unknown]
  - Congenital anomaly [Unknown]
